FAERS Safety Report 6570644-X (Version None)
Quarter: 2010Q1

REPORT INFORMATION
  Report Type: 
  Country: None (occurrence: None)
  Receive Date: 20100204
  Receipt Date: 20100125
  Transmission Date: 20100710
  Serious: Yes (Other)
  Sender: FDA-Public Use
  Company Number: US-PFIZER INC-2010012426

PATIENT
  Sex: Male
  Weight: 117.48 kg

DRUGS (5)
  1. LIPITOR [Suspect]
     Dosage: UNK
     Route: 048
     Dates: start: 20100125
  2. VIAGRA [Suspect]
     Dosage: UNK
     Route: 048
  3. COCAINE [Suspect]
     Dosage: UNK
  4. ALCOHOL [Suspect]
     Dosage: UNK
  5. VITAMINS [Concomitant]
     Dosage: UNK
     Route: 048

REACTIONS (5)
  - ANAL PRURITUS [None]
  - INCORRECT DOSE ADMINISTERED [None]
  - MALE ORGASMIC DISORDER [None]
  - NERVOUSNESS [None]
  - PRIAPISM [None]
